FAERS Safety Report 13844182 (Version 1)
Quarter: 2017Q3

REPORT INFORMATION
  Report Type: Spontaneous
  Country: JP (occurrence: JP)
  Receive Date: 20170808
  Receipt Date: 20170808
  Transmission Date: 20171127
  Serious: Yes (Death)
  Sender: FDA-Public Use
  Company Number: JP-SILVERGATE PHARMACEUTICALS, INC.-2017SIL00006

PATIENT
  Age: 43 Year
  Sex: Female

DRUGS (2)
  1. METHOTREXATE. [Suspect]
     Active Substance: METHOTREXATE
     Indication: NEUROMYELITIS OPTICA SPECTRUM DISORDER
     Dosage: 7.5 MG, 1X/WEEK
     Route: 065
  2. PREDNISOLONE. [Concomitant]
     Active Substance: PREDNISOLONE
     Indication: NEUROMYELITIS OPTICA SPECTRUM DISORDER
     Dosage: 5 MG, 1X/DAY
     Route: 065

REACTIONS (2)
  - Lymphoproliferative disorder [Fatal]
  - Multiple organ dysfunction syndrome [Fatal]
